FAERS Safety Report 23621050 (Version 2)
Quarter: 2024Q2

REPORT INFORMATION
  Report Type: Spontaneous
  Country: JP (occurrence: JP)
  Receive Date: 20240312
  Receipt Date: 20240419
  Transmission Date: 20240716
  Serious: Yes (Hospitalization, Other)
  Sender: FDA-Public Use
  Company Number: JP-CHUGAI-2024007058

PATIENT
  Age: 78 Year
  Sex: Male
  Weight: 54 kg

DRUGS (4)
  1. TECENTRIQ [Suspect]
     Active Substance: ATEZOLIZUMAB
     Indication: Large cell lung cancer
     Dosage: 1200 MILLIGRAM, ONCE/3WEEKS
     Route: 065
     Dates: start: 20230905, end: 20231024
  2. PACLITAXEL [Concomitant]
     Active Substance: PACLITAXEL
     Indication: Large cell lung cancer
     Dosage: UNK
     Dates: start: 20230905, end: 20231024
  3. CARBOPLATIN [Concomitant]
     Active Substance: CARBOPLATIN
     Indication: Large cell lung cancer
     Dosage: UNK
     Dates: start: 20230905, end: 20231024
  4. ABRAXANE [Concomitant]
     Active Substance: PACLITAXEL
     Indication: Large cell lung cancer
     Dosage: UNK
     Dates: start: 202309, end: 20231024

REACTIONS (2)
  - Pneumonia [Recovering/Resolving]
  - Liver disorder [Recovered/Resolved]

NARRATIVE: CASE EVENT DATE: 20231024
